FAERS Safety Report 13650312 (Version 9)
Quarter: 2018Q1

REPORT INFORMATION
  Report Type: Spontaneous
  Country: US (occurrence: US)
  Receive Date: 20170614
  Receipt Date: 20180131
  Transmission Date: 20180508
  Serious: Yes (Congenital Anomaly, Other)
  Sender: FDA-Public Use
  Company Number: PHEH2017US017935

PATIENT
  Sex: Male

DRUGS (3)
  1. ZOFRAN [Suspect]
     Active Substance: ONDANSETRON HYDROCHLORIDE
     Indication: FOETAL EXPOSURE DURING PREGNANCY
     Dosage: MOTHER DOSE: 08 MG, Q6H
     Route: 064
  2. ZOFRAN [Suspect]
     Active Substance: ONDANSETRON HYDROCHLORIDE
     Indication: FOETAL EXPOSURE DURING PREGNANCY
     Dosage: MOTHER DOSE: 08 MG, Q6H
     Route: 064
  3. ONDANSETRON [Suspect]
     Active Substance: ONDANSETRON
     Indication: FOETAL EXPOSURE DURING PREGNANCY
     Route: 064

REACTIONS (41)
  - Aorticopulmonary septal defect [Unknown]
  - Aorta hypoplasia [Unknown]
  - Left-to-right cardiac shunt [Unknown]
  - Right-to-left cardiac shunt [Unknown]
  - Cardiac failure congestive [Recovered/Resolved]
  - Vocal cord paralysis [Unknown]
  - Stridor [Unknown]
  - Single umbilical artery [Unknown]
  - Cerebral haemorrhage [Unknown]
  - Hypoxia [Unknown]
  - Atelectasis [Unknown]
  - Heart disease congenital [Unknown]
  - Anaemia neonatal [Unknown]
  - Developmental delay [Unknown]
  - Upper respiratory tract infection [Unknown]
  - Seborrhoea [Unknown]
  - Coarctation of the aorta [Unknown]
  - Patent ductus arteriosus [Unknown]
  - Laryngomalacia [Unknown]
  - Plagiocephaly [Unknown]
  - Acarodermatitis [Unknown]
  - Pyrexia [Unknown]
  - Neonatal respiratory distress syndrome [Unknown]
  - Premature baby [Unknown]
  - Foetal exposure during pregnancy [Unknown]
  - Injury [Unknown]
  - Congenital anomaly [Unknown]
  - Small for dates baby [Unknown]
  - Hyperbilirubinaemia [Unknown]
  - Cough [Unknown]
  - Fall [Unknown]
  - Mouth injury [Unknown]
  - Pulmonary congestion [Unknown]
  - Juvenile idiopathic arthritis [Unknown]
  - Congenital aortic stenosis [Unknown]
  - Foetal growth restriction [Unknown]
  - Thrombocytosis [Unknown]
  - Hypertension [Unknown]
  - Paronychia [Unknown]
  - Feeding disorder [Unknown]
  - Cardiomegaly [Unknown]

NARRATIVE: CASE EVENT DATE: 20110928
